FAERS Safety Report 14182945 (Version 11)
Quarter: 2018Q2

REPORT INFORMATION
  Report Type: Report from Study
  Country: CA (occurrence: CA)
  Receive Date: 20171113
  Receipt Date: 20180621
  Transmission Date: 20180711
  Serious: Yes (Hospitalization, Other)
  Sender: FDA-Public Use
  Company Number: CA-GLAXOSMITHKLINE-CA2017GSK172400

PATIENT
  Sex: Male

DRUGS (4)
  1. MEPOLIZUMAB [Suspect]
     Active Substance: MEPOLIZUMAB
     Dosage: 100 MG, Z (MONTHLY)
     Route: 042
  2. MEPOLIZUMAB [Suspect]
     Active Substance: MEPOLIZUMAB
     Indication: ASTHMA
     Dosage: 100 MG, Z (MONTHLY)
     Route: 042
  3. MEPOLIZUMAB [Suspect]
     Active Substance: MEPOLIZUMAB
     Dosage: 100 MG, Z (MONTHLY)
     Route: 042
  4. MEPOLIZUMAB [Suspect]
     Active Substance: MEPOLIZUMAB
     Dosage: 100 MG, Z (MONTHLY)
     Route: 042
     Dates: start: 20180206

REACTIONS (11)
  - Lung infection [Unknown]
  - Pseudomonas infection [Unknown]
  - Stenotrophomonas infection [Unknown]
  - Infection [Unknown]
  - Bacterial infection [Unknown]
  - Sputum discoloured [Recovering/Resolving]
  - Productive cough [Recovering/Resolving]
  - Heart rate increased [Unknown]
  - Deep vein thrombosis [Unknown]
  - Secretion discharge [Unknown]
  - Drug ineffective [Unknown]
